FAERS Safety Report 25621944 (Version 1)
Quarter: 2025Q3

REPORT INFORMATION
  Report Type: Spontaneous
  Country: KR (occurrence: KR)
  Receive Date: 20250730
  Receipt Date: 20250730
  Transmission Date: 20251021
  Serious: Yes (Hospitalization, Other)
  Sender: CHEPLAPHARM
  Company Number: KR-ROCHE-2226665

PATIENT
  Age: 49 Year
  Sex: Female
  Weight: 81.4 kg

DRUGS (20)
  1. CAPECITABINE [Suspect]
     Active Substance: CAPECITABINE
     Indication: Triple negative breast cancer
     Dosage: - SHE HAD RECEIVED NINTH CYCLE OF BLINDED ATEZOLIZUMAB PLUS CAPECITABINE CHEMOTHERAPY ON 19/NOV/2...
     Route: 048
     Dates: start: 20180521
  2. ATEZOLIZUMAB [Suspect]
     Active Substance: ATEZOLIZUMAB
     Indication: Triple negative breast cancer
     Dosage: - ON 19/NOV/2018, SHE RECEIVED THE MOST RECENT DOSE OF BLINDED ATEZOLIZUMAB PRIOR TO THE ONSET OF...
     Route: 042
     Dates: start: 20180521, end: 20181210
  3. ATEZOLIZUMAB [Suspect]
     Active Substance: ATEZOLIZUMAB
     Indication: Triple negative breast cancer
     Dosage: - ON 08/JAN/2019, LAST DOSE OF BLINDED ATEZOLIZUMAB?- UNBLINDING ON 25/JULY/2025 REVEALED THAT S...
     Route: 042
     Dates: start: 20181218, end: 20190108
  4. TRAMADOL [Concomitant]
     Active Substance: TRAMADOL
     Dates: start: 20180702
  5. NYSTATIN [Concomitant]
     Active Substance: NYSTATIN
     Dates: start: 20181008, end: 20181220
  6. TRIAMCINOLONE [Concomitant]
     Active Substance: TRIAMCINOLONE
     Dates: start: 20180903, end: 20181022
  7. ERDOSTEINE [Concomitant]
     Active Substance: ERDOSTEINE
     Dates: start: 20181218, end: 20181225
  8. LEVODROPROPIZINE [Concomitant]
     Active Substance: LEVODROPROPIZINE
     Dates: start: 20181218, end: 20181225
  9. METHOCARBAMOL [Concomitant]
     Active Substance: METHOCARBAMOL
     Dates: start: 20181205, end: 20181215
  10. TRAMADOL HCL [Concomitant]
     Active Substance: TRAMADOL HYDROCHLORIDE
     Dates: start: 20181205, end: 20181215
  11. LOXOPROFEN [Concomitant]
     Active Substance: LOXOPROFEN
     Dates: start: 20181205, end: 20181217
  12. MOSAPRIDE CITRATE [Concomitant]
     Active Substance: MOSAPRIDE CITRATE
     Indication: Prophylaxis
     Dates: start: 20181205, end: 20181217
  13. ACETAMINOPHEN [Concomitant]
     Active Substance: ACETAMINOPHEN
     Dates: start: 20181215, end: 20181216
  14. ACETAMINOPHEN [Concomitant]
     Active Substance: ACETAMINOPHEN
     Dates: start: 20190216, end: 20190216
  15. FAMOTIDINE [Concomitant]
     Active Substance: FAMOTIDINE
     Dates: start: 20190108
  16. GUAIFENESIN [Concomitant]
     Active Substance: GUAIFENESIN
     Dates: start: 20190216, end: 20190216
  17. PENTOXYVERINE CITRATE [Concomitant]
     Active Substance: PENTOXYVERINE CITRATE
     Dates: start: 20190216, end: 20190216
  18. PHENYLEPHRINE [Concomitant]
     Active Substance: PHENYLEPHRINE
     Dates: start: 20190216, end: 20190216
  19. CHLORPHENIRAMINE [Concomitant]
     Active Substance: CHLORPHENIRAMINE
     Dates: start: 20190216, end: 20190216
  20. RIVAROXABAN [Concomitant]
     Active Substance: RIVAROXABAN
     Dates: start: 20190313

REACTIONS (3)
  - Neck pain [Recovered/Resolved]
  - Back pain [Recovered/Resolved]
  - Road traffic accident [Unknown]

NARRATIVE: CASE EVENT DATE: 20181205
